FAERS Safety Report 16205191 (Version 1)
Quarter: 2019Q2

REPORT INFORMATION
  Report Type: Spontaneous
  Country: ES (occurrence: ES)
  Receive Date: 20190416
  Receipt Date: 20190416
  Transmission Date: 20190711
  Serious: Yes (Other)
  Sender: FDA-Public Use
  Company Number: PHHY2019ES085815

PATIENT
  Age: 63 Year
  Sex: Male

DRUGS (3)
  1. BRILIQUE [Interacting]
     Active Substance: TICAGRELOR
     Dosage: 90 MG, QD
     Route: 048
     Dates: start: 20190322, end: 20190322
  2. BRILIQUE [Interacting]
     Active Substance: TICAGRELOR
     Indication: ACUTE MYOCARDIAL INFARCTION
     Dosage: 180 MG, QD
     Route: 048
     Dates: start: 20190321, end: 20190321
  3. BISOPROLOL [Suspect]
     Active Substance: BISOPROLOL
     Indication: ACUTE MYOCARDIAL INFARCTION
     Dosage: 2.5 MG, QD
     Route: 048
     Dates: start: 20190322, end: 20190322

REACTIONS (1)
  - Atrioventricular block [Recovered/Resolved]

NARRATIVE: CASE EVENT DATE: 20190322
